FAERS Safety Report 7513867-5 (Version None)
Quarter: 2011Q2

REPORT INFORMATION
  Report Type: 
  Country: None (occurrence: None)
  Receive Date: 20110531
  Receipt Date: 20110518
  Transmission Date: 20111010
  Serious: Yes (Other)
  Sender: FDA-Public Use
  Company Number: PHHY2011US43503

PATIENT
  Sex: Female

DRUGS (9)
  1. FOSAMAX [Suspect]
     Dosage: 10 MG/ PER DAY, THEN WEEKLY 70 MG
  2. VERAPAMIL - SLOW RELEASE [Concomitant]
  3. THYROID TAB [Concomitant]
  4. ASMANEX TWISTHALER [Concomitant]
  5. POTASSIUM CHLORIDE [Concomitant]
  6. VIVELLE-DOT [Suspect]
     Dosage: UNK OT, QW2
     Route: 062
  7. CALCIUM WITH VITAMIN D [Concomitant]
  8. SINGULAIR [Concomitant]
  9. NEXIUM [Concomitant]

REACTIONS (4)
  - STRESS FRACTURE [None]
  - SPINAL FRACTURE [None]
  - DRUG INEFFECTIVE [None]
  - TIBIA FRACTURE [None]
